FAERS Safety Report 5503398-6 (Version None)
Quarter: 2007Q4

REPORT INFORMATION
  Report Type: 
  Country: None (occurrence: None)
  Receive Date: 20071031
  Receipt Date: 20071026
  Transmission Date: 20080405
  Serious: Yes (Hospitalization)
  Sender: FDA-Public Use
  Company Number: IE-GENENTECH-248172

PATIENT
  Sex: Female

DRUGS (2)
  1. RAPTIVA [Suspect]
     Indication: PSORIASIS
     Dosage: 60 MG, 1/WEEK
     Route: 058
     Dates: start: 20070406, end: 20071001
  2. RAPTIVA [Suspect]
     Dates: start: 20070911, end: 20071001

REACTIONS (2)
  - FOOD POISONING [None]
  - PSORIASIS [None]
